FAERS Safety Report 9543835 (Version 2)
Quarter: 2014Q2

REPORT INFORMATION
  Report Type: Spontaneous
  Country: US (occurrence: US)
  Receive Date: 20130923
  Receipt Date: 20140414
  Transmission Date: 20141212
  Serious: Yes (Hospitalization)
  Sender: FDA-Public Use
  Company Number: US-GLAXOSMITHKLINE-A1036036A

PATIENT
  Sex: Male

DRUGS (2)
  1. AVANDARYL [Suspect]
     Indication: TYPE 2 DIABETES MELLITUS
     Route: 048
  2. INSULIN [Concomitant]

REACTIONS (8)
  - Cardiac operation [Unknown]
  - Cardiovascular disorder [Unknown]
  - Cardiac disorder [Unknown]
  - Nausea [Unknown]
  - Dizziness [Unknown]
  - Chest pain [Unknown]
  - Cardiomegaly [Unknown]
  - Myocardial infarction [Unknown]
